FAERS Safety Report 9268657 (Version 2)
Quarter: 2013Q4

REPORT INFORMATION
  Report Type: Report from Study
  Country: US (occurrence: US)
  Receive Date: 20130502
  Receipt Date: 20131002
  Transmission Date: 20140711
  Serious: Yes (Hospitalization)
  Sender: FDA-Public Use
  Company Number: US-ALEXION-A201300163

PATIENT
  Age: 0 Year
  Sex: Male
  Weight: 6.8 kg

DRUGS (1)
  1. SOLIRIS [Suspect]
     Indication: HAEMOLYTIC URAEMIC SYNDROME
     Dosage: UNK
     Route: 042
     Dates: start: 20121127

REACTIONS (4)
  - Unevaluable event [Unknown]
  - Pallor [Unknown]
  - Vomiting [Unknown]
  - Gastrointestinal infection [Unknown]
